FAERS Safety Report 7124436-3 (Version None)
Quarter: 2010Q4

REPORT INFORMATION
  Report Type: 
  Country: None (occurrence: None)
  Receive Date: 20101126
  Receipt Date: 20101108
  Transmission Date: 20110411
  Serious: Yes (Other)
  Sender: FDA-Public Use
  Company Number: PHHY2010CA73140

PATIENT
  Sex: Male

DRUGS (2)
  1. EXJADE [Suspect]
     Indication: MYELODYSPLASTIC SYNDROME
     Dosage: 1500 MG
     Route: 048
     Dates: start: 20101023
  2. ZANTAC [Concomitant]

REACTIONS (2)
  - ANGINA PECTORIS [None]
  - DIARRHOEA [None]
